FAERS Safety Report 18811123 (Version 1)
Quarter: 2021Q1

REPORT INFORMATION
  Report Type: Spontaneous
  Country: US (occurrence: US)
  Receive Date: 20210129
  Receipt Date: 20210129
  Transmission Date: 20210419
  Serious: No
  Sender: FDA-Public Use
  Company Number: US-LUNDBECK-DKLU3025440

PATIENT
  Age: 37 Year
  Sex: Female

DRUGS (1)
  1. NORTHERA [Suspect]
     Active Substance: DROXIDOPA
     Indication: PARKINSON^S DISEASE
     Route: 048
     Dates: start: 20190917

REACTIONS (2)
  - Fall [Not Recovered/Not Resolved]
  - Face injury [Not Recovered/Not Resolved]

NARRATIVE: CASE EVENT DATE: 202012
